FAERS Safety Report 12113511 (Version 1)
Quarter: 2016Q1

REPORT INFORMATION
  Report Type: Spontaneous
  Country: US (occurrence: US)
  Receive Date: 20160225
  Receipt Date: 20160225
  Transmission Date: 20160526
  Serious: No
  Sender: FDA-Public Use
  Company Number: US-AMGEN-USASP2016020075

PATIENT
  Age: 66 Year
  Sex: Female

DRUGS (1)
  1. ENBREL [Suspect]
     Active Substance: ETANERCEPT
     Indication: RHEUMATOID ARTHRITIS
     Dosage: 25 MG, UNK
     Route: 065

REACTIONS (6)
  - Nasopharyngitis [Unknown]
  - Swelling [Not Recovered/Not Resolved]
  - Skin infection [Unknown]
  - Skin ulcer [Unknown]
  - Pain [Not Recovered/Not Resolved]
  - Infection [Recovered/Resolved]
